FAERS Safety Report 9536118 (Version 1)
Quarter: 2013Q2

REPORT INFORMATION
  Report Type: Spontaneous
  Country: US (occurrence: None)
  Receive Date: 20130517
  Receipt Date: 20130517
  Transmission Date: 20140414
  Serious: Yes (Other)
  Sender: FDA-Public Use
  Company Number: 1000042302

PATIENT
  Sex: Male

DRUGS (2)
  1. VIIBRYD [Suspect]
     Dosage: 10MG (10 MG, 1 IN 1 D), ORAL
     Route: 048
     Dates: start: 20130125
  2. SIMVASTATIN (SIMVASTATIN) (SIMVASTATIN) [Concomitant]

REACTIONS (5)
  - Unevaluable event [None]
  - Ocular hyperaemia [None]
  - Eye irritation [None]
  - Abdominal pain upper [None]
  - Off label use [None]
